FAERS Safety Report 6835694-4 (Version None)
Quarter: 2010Q3

REPORT INFORMATION
  Report Type: 
  Country: None (occurrence: None)
  Receive Date: 20100713
  Receipt Date: 20100712
  Transmission Date: 20110219
  Serious: Yes (Hospitalization)
  Sender: FDA-Public Use
  Company Number: PL-AMGEN-KDC391775

PATIENT
  Sex: Female

DRUGS (15)
  1. DENOSUMAB [Suspect]
     Indication: OSTEOPOROSIS POSTMENOPAUSAL
     Route: 058
     Dates: start: 20080208
  2. HOMEOPATHIC PREPARATION [Concomitant]
  3. BETASERC [Concomitant]
     Route: 048
     Dates: start: 20090217
  4. PIRACETAM [Concomitant]
     Route: 048
     Dates: start: 19980101
  5. DICLOFENAC SODIUM [Concomitant]
     Route: 048
     Dates: start: 20060719, end: 20060726
  6. NITROFURANTOIN [Concomitant]
     Dates: start: 20061001
  7. PYRIDOXINE HCL [Concomitant]
     Route: 048
     Dates: start: 20060901, end: 20060930
  8. MAGNESIUM [Concomitant]
     Route: 048
     Dates: start: 20060901, end: 20060930
  9. INFLUENZA VACCINE [Concomitant]
     Route: 058
  10. HYALURONIC ACID [Concomitant]
     Dates: start: 20080801, end: 20080901
  11. GLUCOSAMINE [Concomitant]
     Route: 048
     Dates: start: 20081015, end: 20081128
  12. DIPROPHOS [Concomitant]
     Dates: start: 20081129, end: 20081129
  13. LIDOCAINE [Concomitant]
     Route: 030
     Dates: start: 20090106, end: 20090205
  14. CIPROFLOXACIN [Concomitant]
     Route: 048
     Dates: start: 20060507, end: 20060511
  15. NYSTATIN [Concomitant]
     Dates: start: 20060507, end: 20060511

REACTIONS (2)
  - ATRIAL FIBRILLATION [None]
  - OVARIAN CYST [None]
